FAERS Safety Report 5429477-X (Version None)
Quarter: 2007Q3

REPORT INFORMATION
  Report Type: 
  Country: None (occurrence: None)
  Receive Date: 20070829
  Receipt Date: 20070824
  Transmission Date: 20080115
  Serious: Yes (Other)
  Sender: FDA-Public Use
  Company Number: B0480862A

PATIENT
  Sex: Male
  Weight: 56 kg

DRUGS (2)
  1. PAXIL [Suspect]
     Indication: PANIC DISORDER
     Route: 048
     Dates: start: 20070721
  2. ALPRAZOLAM [Concomitant]
     Indication: PANIC DISORDER
     Dosage: .4MG PER DAY
     Route: 048

REACTIONS (6)
  - APATHY [None]
  - COMMUNICATION DISORDER [None]
  - DEPRESSED LEVEL OF CONSCIOUSNESS [None]
  - MENTAL IMPAIRMENT [None]
  - OVERDOSE [None]
  - SUICIDE ATTEMPT [None]
